FAERS Safety Report 9439720 (Version 1)
Quarter: 2013Q3

REPORT INFORMATION
  Report Type: Spontaneous
  Country: US (occurrence: US)
  Receive Date: 20130805
  Receipt Date: 20130805
  Transmission Date: 20140515
  Serious: Yes (Other)
  Sender: FDA-Public Use
  Company Number: US-JNJFOC-20130717157

PATIENT
  Age: 51 Year
  Sex: Male

DRUGS (1)
  1. NICORETTE ICY WHITE GUM 2MG [Suspect]
     Indication: PRODUCT USED FOR UNKNOWN INDICATION
     Route: 065
     Dates: start: 20130722, end: 20130723

REACTIONS (3)
  - Condition aggravated [Not Recovered/Not Resolved]
  - Blood pressure increased [Recovered/Resolved]
  - Nicotine dependence [Not Recovered/Not Resolved]
